FAERS Safety Report 12104280 (Version 6)
Quarter: 2016Q1

REPORT INFORMATION
  Report Type: Spontaneous
  Country: CZ (occurrence: CZ)
  Receive Date: 20160223
  Receipt Date: 20160311
  Transmission Date: 20160526
  Serious: Yes (Other)
  Sender: FDA-Public Use
  Company Number: CZ-009507513-1602CZE009820

PATIENT
  Age: 52 Year
  Sex: Male
  Weight: 100 kg

DRUGS (1)
  1. BRIDION [Suspect]
     Active Substance: SUGAMMADEX
     Indication: NEUROMUSCULAR BLOCKADE REVERSAL
     Route: 042
     Dates: start: 20160218, end: 20160218

REACTIONS (5)
  - Pruritus [Unknown]
  - Product quality issue [Unknown]
  - Nausea [Unknown]
  - Rash maculo-papular [Unknown]
  - Hot flush [Unknown]

NARRATIVE: CASE EVENT DATE: 20160218
